FAERS Safety Report 5614396-6 (Version None)
Quarter: 2008Q1

REPORT INFORMATION
  Report Type: 
  Country: None (occurrence: None)
  Receive Date: 20080205
  Receipt Date: 20080124
  Transmission Date: 20080703
  Serious: Yes (Other)
  Sender: FDA-Public Use
  Company Number: US-PFIZER INC-2008008986

PATIENT
  Sex: Female
  Weight: 85.454 kg

DRUGS (5)
  1. CHANTIX [Suspect]
     Indication: SMOKING CESSATION THERAPY
  2. TEGRETOL [Concomitant]
  3. MELLARIL [Concomitant]
  4. ATIVAN [Concomitant]
  5. ALL OTHER THERAPEUTIC PRODUCTS [Concomitant]

REACTIONS (3)
  - HALLUCINATION [None]
  - OVERDOSE [None]
  - PARANOIA [None]
